FAERS Safety Report 4890442-2 (Version None)
Quarter: 2005Q4

REPORT INFORMATION
  Report Type: 
  Country: None (occurrence: None)
  Receive Date: 20051216
  Receipt Date: 20051006
  Transmission Date: 20060501
  Serious: No
  Sender: FDA-Public Use
  Company Number: BDI-007632

PATIENT
  Age: 66 Year
  Sex: Female
  Weight: 124 kg

DRUGS (7)
  1. MULTIHANCE [Suspect]
     Indication: MENINGIOMA
     Dosage: 27 ML ONCE IV
     Route: 042
     Dates: start: 20051004, end: 20051004
  2. MULTIHANCE [Suspect]
     Indication: NUCLEAR MAGNETIC RESONANCE IMAGING BRAIN
     Dosage: 27 ML ONCE IV
     Route: 042
     Dates: start: 20051004, end: 20051004
  3. LASIX-K [Concomitant]
  4. SYNTHROID [Concomitant]
  5. VICODIN [Concomitant]
  6. EFFEXOR [Concomitant]
  7. POTASSIUM [Concomitant]

REACTIONS (1)
  - NAUSEA [None]
